FAERS Safety Report 22599046 (Version 1)
Quarter: 2023Q2

REPORT INFORMATION
  Report Type: Spontaneous
  Country: US (occurrence: US)
  Receive Date: 20230614
  Receipt Date: 20230614
  Transmission Date: 20230722
  Serious: No
  Sender: FDA-Public Use
  Company Number: US-AMGEN-USASP2023097118

PATIENT
  Age: 39 Year
  Sex: Female

DRUGS (2)
  1. ROMIPLOSTIM [Suspect]
     Active Substance: ROMIPLOSTIM
     Indication: Immune thrombocytopenia
     Dosage: 2 MICROGRAM PER KILOGRAM, QWK
     Route: 065
  2. ROMIPLOSTIM [Suspect]
     Active Substance: ROMIPLOSTIM
     Dosage: 7 MICROGRAM PER KILOGRAM, QWK
     Route: 065

REACTIONS (3)
  - Megakaryocytes increased [Unknown]
  - Platelet count decreased [Unknown]
  - Product administration interrupted [Unknown]
